FAERS Safety Report 17315460 (Version 1)
Quarter: 2020Q1

REPORT INFORMATION
  Report Type: Spontaneous
  Country: US (occurrence: US)
  Receive Date: 20200108
  Receipt Date: 20200108
  Transmission Date: 20200409
  Serious: No
  Sender: FDA-Public Use
  Company Number: None

PATIENT
  Age: 61 Year
  Sex: Female

DRUGS (1)
  1. PROLIA [Suspect]
     Active Substance: DENOSUMAB
     Route: 058
     Dates: start: 201902

REACTIONS (4)
  - Back pain [None]
  - Nerve compression [None]
  - Arthralgia [None]
  - Intervertebral disc degeneration [None]

NARRATIVE: CASE EVENT DATE: 20200108
